FAERS Safety Report 6122065-1 (Version None)
Quarter: 2009Q1

REPORT INFORMATION
  Report Type: 
  Country: None (occurrence: None)
  Receive Date: 20090316
  Receipt Date: 20090316
  Transmission Date: 20090719
  Serious: No
  Sender: FDA-Public Use
  Company Number: None

PATIENT
  Age: 72 Year
  Sex: Male
  Weight: 101.47 kg

DRUGS (1)
  1. VANCOMYCIN HCL [Suspect]
     Indication: ANTIBIOTIC PROPHYLAXIS
     Dosage: 1500 MG ONCE IV
     Route: 042
     Dates: start: 20090224, end: 20090224

REACTIONS (6)
  - FEELING ABNORMAL [None]
  - HYPERHIDROSIS [None]
  - HYPOTENSION [None]
  - INFUSION RELATED REACTION [None]
  - MYDRIASIS [None]
  - UNRESPONSIVE TO STIMULI [None]
